FAERS Safety Report 15154189 (Version 1)
Quarter: 2018Q3

REPORT INFORMATION
  Report Type: Spontaneous
  Country: US (occurrence: US)
  Receive Date: 20180717
  Receipt Date: 20180717
  Transmission Date: 20181010
  Serious: No
  Sender: FDA-Public Use
  Company Number: US-SA-2018SA173415

PATIENT
  Age: 2 Year
  Sex: Male

DRUGS (1)
  1. XYZAL ALLERGY 24HR [Suspect]
     Active Substance: LEVOCETIRIZINE DIHYDROCHLORIDE
     Dosage: UNK
     Route: 048

REACTIONS (6)
  - Insomnia [Unknown]
  - Anger [Unknown]
  - Nightmare [Unknown]
  - Depression [Unknown]
  - Screaming [Unknown]
  - Hallucination [Unknown]
